FAERS Safety Report 8367416-2 (Version None)
Quarter: 2012Q2

REPORT INFORMATION
  Report Type: 
  Country: None (occurrence: None)
  Receive Date: 20120517
  Receipt Date: 20120510
  Transmission Date: 20120825
  Serious: Yes (Hospitalization)
  Sender: FDA-Public Use
  Company Number: US-MERCK-1201USA02841

PATIENT
  Age: 56 Year
  Sex: Female

DRUGS (4)
  1. FOSAMAX [Suspect]
     Indication: OSTEOPOROSIS
     Route: 048
     Dates: start: 19960101, end: 20030801
  2. FOSAMAX [Suspect]
     Route: 048
     Dates: start: 20090314, end: 20100201
  3. CALCIUM (UNSPECIFIED) AND VITAMIN D (UNSPECIFIED) [Concomitant]
     Route: 048
     Dates: start: 19960101
  4. HORMONES (UNSPECIFIED) [Concomitant]
     Route: 048
     Dates: start: 19680101

REACTIONS (12)
  - PNEUMONIA [None]
  - INTERVERTEBRAL DISC DEGENERATION [None]
  - FEMUR FRACTURE [None]
  - CARDIAC DISORDER [None]
  - STRESS FRACTURE [None]
  - LOW TURNOVER OSTEOPATHY [None]
  - IMPAIRED HEALING [None]
  - MENIERE'S DISEASE [None]
  - BLOOD CHOLESTEROL INCREASED [None]
  - BURSITIS [None]
  - DRUG INEFFECTIVE [None]
  - NEUROMA [None]
